FAERS Safety Report 4681265-8 (Version None)
Quarter: 2005Q2

REPORT INFORMATION
  Report Type: 
  Country: None (occurrence: None)
  Receive Date: 20050602
  Receipt Date: 20050602
  Transmission Date: 20051028
  Serious: Yes (Disabling)
  Sender: FDA-Public Use
  Company Number: None

PATIENT
  Age: 57 Year
  Sex: Male
  Weight: 81.6475 kg

DRUGS (1)
  1. VIAGRA [Suspect]
     Indication: ERECTILE DYSFUNCTION
     Dosage: 100MG   DAILY   ORAL
     Route: 048
     Dates: start: 19980612, end: 19990530

REACTIONS (4)
  - BLINDNESS [None]
  - DISABILITY [None]
  - IMPAIRED WORK ABILITY [None]
  - LOW TENSION GLAUCOMA [None]
